FAERS Safety Report 17841676 (Version 1)
Quarter: 2020Q2

REPORT INFORMATION
  Report Type: Spontaneous
  Country: US (occurrence: US)
  Receive Date: 20200529
  Receipt Date: 20200529
  Transmission Date: 20200714
  Serious: No
  Sender: FDA-Public Use
  Company Number: US-VERTEX PHARMACEUTICALS-2020-011279

PATIENT
  Age: 10 Year

DRUGS (1)
  1. ORKAMBI [Suspect]
     Active Substance: IVACAFTOR\LUMACAFTOR
     Indication: CYSTIC FIBROSIS
     Route: 048

REACTIONS (3)
  - Mycobacterium abscessus infection [Not Recovered/Not Resolved]
  - Pulmonary function test decreased [Unknown]
  - Liver function test increased [Recovered/Resolved]
